FAERS Safety Report 12590264 (Version 5)
Quarter: 2016Q4

REPORT INFORMATION
  Report Type: Report from Study
  Country: BR (occurrence: BR)
  Receive Date: 20160725
  Receipt Date: 20161014
  Transmission Date: 20170207
  Serious: Yes (Life-Threatening)
  Sender: FDA-Public Use
  Company Number: BR-B.I. PHARMACEUTICALS,INC./RIDGEFIELD-2016-BI-48263BI

PATIENT
  Age: 77 Year
  Sex: Male
  Weight: 64.5 kg

DRUGS (4)
  1. N-ACETYLCIST [Concomitant]
     Indication: IDIOPATHIC PULMONARY FIBROSIS
     Route: 048
     Dates: start: 20140414
  2. BIBF 1120 [Suspect]
     Active Substance: NINTEDANIB
     Indication: IDIOPATHIC PULMONARY FIBROSIS
     Dosage: FORM OF ADMIN: KAW
     Route: 048
     Dates: start: 20150923, end: 20160624
  3. BIBF 1120 [Suspect]
     Active Substance: NINTEDANIB
     Dates: start: 20160722
  4. DEFLAZACORT [Concomitant]
     Active Substance: DEFLAZACORT
     Indication: IDIOPATHIC PULMONARY FIBROSIS
     Route: 048
     Dates: start: 20140414

REACTIONS (1)
  - Platelet count decreased [Not Recovered/Not Resolved]

NARRATIVE: CASE EVENT DATE: 20160624
